FAERS Safety Report 5372620-1 (Version None)
Quarter: 2007Q2

REPORT INFORMATION
  Report Type: 
  Country: None (occurrence: None)
  Receive Date: 20070615
  Receipt Date: 20060726
  Transmission Date: 20071010
  Serious: Yes (Other)
  Sender: FDA-Public Use
  Company Number: 200611117US

PATIENT
  Age: 54 Year
  Sex: Female

DRUGS (8)
  1. LANTUS [Suspect]
     Indication: DIABETES MELLITUS NON-INSULIN-DEPENDENT
     Dosage: 10 U QD
     Dates: start: 20060128, end: 20060128
  2. LANTUS [Suspect]
     Indication: DIABETES MELLITUS NON-INSULIN-DEPENDENT
     Dosage: 20 U QD
     Dates: start: 20060129, end: 20060129
  3. LANTUS [Suspect]
     Indication: DIABETES MELLITUS NON-INSULIN-DEPENDENT
     Dosage: 23 U QD
     Dates: start: 20060130
  4. OPTICLIK [Suspect]
     Dates: start: 20060128
  5. INSULIN HUMAN (HUMULIN R) [Concomitant]
  6. LISINOPRIL [Concomitant]
  7. FUROSEMIDE (LASIX /00032601/) [Concomitant]
  8. TRAMADOL HCL [Concomitant]

REACTIONS (1)
  - HYPERGLYCAEMIA [None]
